FAERS Safety Report 21819224 (Version 2)
Quarter: 2023Q1

REPORT INFORMATION
  Report Type: Spontaneous
  Country: CA (occurrence: CA)
  Receive Date: 20230104
  Receipt Date: 20230117
  Transmission Date: 20230418
  Serious: Yes (Other)
  Sender: FDA-Public Use
  Company Number: CA-MLMSERVICE-20221222-3995135-2

PATIENT
  Age: 69 Year
  Sex: Male

DRUGS (15)
  1. DEXAMETHASONE [Suspect]
     Active Substance: DEXAMETHASONE
     Indication: Premedication
     Route: 048
  2. DEXAMETHASONE [Suspect]
     Active Substance: DEXAMETHASONE
     Indication: Premedication
     Route: 042
  3. PREDNISOLONE [Suspect]
     Active Substance: PREDNISOLONE
     Indication: Gout
     Route: 048
  4. OXALIPLATIN [Concomitant]
     Active Substance: OXALIPLATIN
     Indication: Acinar cell carcinoma of pancreas
     Dosage: RECEIVED IN MODIFIED FOLFIRINOX REGIMEN EVERY 2-WK IN TOTAL 11 CYCLE
     Route: 065
  5. OXALIPLATIN [Concomitant]
     Active Substance: OXALIPLATIN
     Indication: Panniculitis lobular
  6. OXALIPLATIN [Concomitant]
     Active Substance: OXALIPLATIN
     Indication: Metastases to liver
  7. IRINOTECAN [Concomitant]
     Active Substance: IRINOTECAN
     Indication: Acinar cell carcinoma of pancreas
     Dosage: RECEIVED IN MODIFIED FOLFIRINOX REGIMEN EVERY 2-WK IN TOTAL 11 CYCLE
     Route: 065
  8. IRINOTECAN [Concomitant]
     Active Substance: IRINOTECAN
     Indication: Panniculitis lobular
  9. IRINOTECAN [Concomitant]
     Active Substance: IRINOTECAN
     Indication: Metastases to liver
  10. FLUOROURACIL [Concomitant]
     Active Substance: FLUOROURACIL
     Indication: Acinar cell carcinoma of pancreas
     Dosage: RECEIVED IN MODIFIED FOLFIRINOX REGIMEN EVERY 2-WK IN TOTAL 11 CYCLE
     Route: 065
  11. FLUOROURACIL [Concomitant]
     Active Substance: FLUOROURACIL
     Indication: Panniculitis lobular
  12. FLUOROURACIL [Concomitant]
     Active Substance: FLUOROURACIL
     Indication: Metastases to liver
  13. LEUCOVORIN [Concomitant]
     Active Substance: LEUCOVORIN
     Indication: Acinar cell carcinoma of pancreas
     Dosage: RECEIVED IN MODIFIED FOLFIRINOX REGIMEN EVERY 2-WK IN TOTAL 11 CYCLE
     Route: 065
  14. LEUCOVORIN [Concomitant]
     Active Substance: LEUCOVORIN
     Indication: Panniculitis lobular
  15. LEUCOVORIN [Concomitant]
     Active Substance: LEUCOVORIN
     Indication: Metastases to liver

REACTIONS (1)
  - Substance-induced psychotic disorder [Recovered/Resolved]
